FAERS Safety Report 8340439-5 (Version None)
Quarter: 2012Q2

REPORT INFORMATION
  Report Type: 
  Country: None (occurrence: None)
  Receive Date: 20120507
  Receipt Date: 20120507
  Transmission Date: 20120825
  Serious: Yes (Life-Threatening, Hospitalization, Disabling)
  Sender: FDA-Public Use
  Company Number: None

PATIENT
  Age: 22 Year
  Sex: Male
  Weight: 63.502 kg

DRUGS (1)
  1. ADDERALL XR 10 [Suspect]
     Indication: ATTENTION DEFICIT/HYPERACTIVITY DISORDER
     Dosage: |STRENGTH: 30 MG||FREQ: 2 TIMES DAILY||ROUTE: ORAL|
     Route: 048
     Dates: start: 20100101, end: 20120419

REACTIONS (8)
  - DANDRUFF [None]
  - DEPRESSION [None]
  - WEIGHT DECREASED [None]
  - HALLUCINATION, VISUAL [None]
  - SELF INJURIOUS BEHAVIOUR [None]
  - PARANOIA [None]
  - ABNORMAL BEHAVIOUR [None]
  - SUICIDE ATTEMPT [None]
